FAERS Safety Report 25550224 (Version 3)
Quarter: 2025Q3

REPORT INFORMATION
  Report Type: Spontaneous
  Country: US (occurrence: US)
  Receive Date: 20250714
  Receipt Date: 20250925
  Transmission Date: 20251021
  Serious: Yes (Life-Threatening, Hospitalization, Other)
  Sender: BRISTOL-MYERS SQUIBB COMPANY
  Company Number: US-BRISTOL-MYERS SQUIBB COMPANY-2025-098471

PATIENT
  Age: 71 Year
  Sex: Female

DRUGS (2)
  1. POMALYST [Suspect]
     Active Substance: POMALIDOMIDE
     Indication: Plasma cell myeloma
     Dates: start: 20250613
  2. POMALYST [Suspect]
     Active Substance: POMALIDOMIDE
     Dates: start: 20250710

REACTIONS (6)
  - Neutropenia [Unknown]
  - Full blood count decreased [Unknown]
  - Atrial fibrillation [Recovered/Resolved]
  - Cardiac arrest [Unknown]
  - Erosive oesophagitis [Unknown]
  - Off label use [Unknown]

NARRATIVE: CASE EVENT DATE: 20250703
